FAERS Safety Report 10768564 (Version 1)
Quarter: 2015Q1

REPORT INFORMATION
  Report Type: Spontaneous
  Country: US (occurrence: None)
  Receive Date: 20150204
  Receipt Date: 20150204
  Transmission Date: 20150721
  Serious: Yes (Other)
  Sender: FDA-Public Use
  Company Number: US-001644

PATIENT
  Sex: Female

DRUGS (2)
  1. SOLUIONS FPR [ARENTERAL NUTRITION [Concomitant]
  2. GATTEX [Suspect]
     Active Substance: TEDUGLUTIDE\WATER
     Indication: SHORT-BOWEL SYNDROME
     Dosage: DF SUBCUTANEOUS
     Route: 058
     Dates: start: 20141001

REACTIONS (3)
  - Swelling [None]
  - Leukaemia [None]
  - Gastrointestinal disorder [None]
